FAERS Safety Report 20830576 (Version 2)
Quarter: 2022Q2

REPORT INFORMATION
  Report Type: Spontaneous
  Country: US (occurrence: US)
  Receive Date: 20220514
  Receipt Date: 20220608
  Transmission Date: 20220721
  Serious: Yes (Hospitalization, Other)
  Sender: FDA-Public Use
  Company Number: US-BRISTOL-MYERS SQUIBB COMPANY-2022-036093

PATIENT
  Age: 74 Year
  Sex: Male

DRUGS (1)
  1. REVLIMID [Suspect]
     Active Substance: LENALIDOMIDE
     Indication: Product used for unknown indication
     Dosage: FREQUENCY WAS OTHER
     Route: 048
     Dates: start: 202204, end: 202205

REACTIONS (6)
  - Nausea [Unknown]
  - Somnolence [Unknown]
  - Vomiting [Unknown]
  - Dizziness [Unknown]
  - Thrombocytopenia [Unknown]
  - Hypotension [Unknown]

NARRATIVE: CASE EVENT DATE: 20220506
